FAERS Safety Report 10589583 (Version 1)
Quarter: 2014Q4

REPORT INFORMATION
  Report Type: Spontaneous
  Country: US (occurrence: None)
  Receive Date: 20141114
  Receipt Date: 20141114
  Transmission Date: 20150529
  Serious: Yes (Hospitalization, Other)
  Sender: FDA-Public Use
  Company Number: B0968073A

PATIENT
  Age: 43 Year
  Sex: Male
  Weight: 85 kg

DRUGS (14)
  1. VIREAD (TENOFOVIR DISOPROXIL FUMARATE) [Concomitant]
  2. DAPSONE. [Concomitant]
     Active Substance: DAPSONE
  3. ALBUTEROL MDI (SALBUTAMOL) [Concomitant]
  4. MULTIVITAMIN (VITAMINS NOS) [Concomitant]
     Active Substance: VITAMINS
  5. DARUNAVIR [Concomitant]
     Active Substance: DARUNAVIR
  6. RITONAVIR. [Concomitant]
     Active Substance: RITONAVIR
  7. HYDROXYZINE [Concomitant]
     Active Substance: HYDROXYZINE\HYDROXYZINE HYDROCHLORIDE
  8. AMITRIPTYLINE [Concomitant]
     Active Substance: AMITRIPTYLINE
  9. OMEPRAZOLE. [Concomitant]
     Active Substance: OMEPRAZOLE
  10. HYDROCHLOROTHIAZIDE. [Concomitant]
     Active Substance: HYDROCHLOROTHIAZIDE
  11. PERCOCET (OXYCODONE HYDROCHLORIDE + PARACETAMOL) [Concomitant]
  12. MARAVIROC (MARAVIROC) FILM-COATED TABLET [Suspect]
     Active Substance: MARAVIROC
     Indication: HIV INFECTION
     Route: 048
     Dates: start: 20130304
  13. SENNA [Concomitant]
     Active Substance: SENNA LEAF\SENNOSIDES\SENNOSIDES A AND B
  14. NAPROXEN. [Concomitant]
     Active Substance: NAPROXEN

REACTIONS (1)
  - Diffuse large B-cell lymphoma [None]

NARRATIVE: CASE EVENT DATE: 20131023
